FAERS Safety Report 21695676 (Version 1)
Quarter: 2022Q4

REPORT INFORMATION
  Report Type: Spontaneous
  Country: IL (occurrence: IL)
  Receive Date: 20221207
  Receipt Date: 20221207
  Transmission Date: 20230113
  Serious: Yes (Hospitalization, Other)
  Sender: FDA-Public Use
  Company Number: IL-NOVOPROD-984898

PATIENT
  Age: 60 Year
  Sex: Female

DRUGS (2)
  1. OZEMPIC [Suspect]
     Active Substance: SEMAGLUTIDE
     Indication: Product used for unknown indication
     Dosage: UNK
  2. XENICAL [Concomitant]
     Active Substance: ORLISTAT
     Indication: Product used for unknown indication
     Dosage: TAKEN TWICE A DAY

REACTIONS (1)
  - Renal colic [Recovering/Resolving]
